FAERS Safety Report 18283614 (Version 1)
Quarter: 2020Q3

REPORT INFORMATION
  Report Type: Spontaneous
  Country: PE (occurrence: PE)
  Receive Date: 20200918
  Receipt Date: 20200918
  Transmission Date: 20201103
  Serious: Yes (Other)
  Sender: FDA-Public Use
  Company Number: PE-ELI_LILLY_AND_COMPANY-PE202009006554

PATIENT
  Sex: Male

DRUGS (2)
  1. CYRAMZA [Suspect]
     Active Substance: RAMUCIRUMAB
     Indication: ADENOCARCINOMA GASTRIC
     Dosage: UNK, UNKNOWN
     Route: 065
     Dates: start: 201803
  2. PACLITAXEL. [Suspect]
     Active Substance: PACLITAXEL
     Indication: ADENOCARCINOMA GASTRIC
     Dosage: UNK, UNKNOWN
     Route: 065
     Dates: start: 201803

REACTIONS (7)
  - Nephropathy [Unknown]
  - Hypoalbuminaemia [Unknown]
  - Malignant neoplasm progression [Unknown]
  - Proteinuria [Unknown]
  - Oedema [Unknown]
  - Pneumonitis [Unknown]
  - Hypertension [Unknown]

NARRATIVE: CASE EVENT DATE: 201809
